FAERS Safety Report 5482358-8 (Version None)
Quarter: 2007Q4

REPORT INFORMATION
  Report Type: 
  Country: None (occurrence: None)
  Receive Date: 20071011
  Receipt Date: 20071009
  Transmission Date: 20080405
  Serious: Yes (Hospitalization)
  Sender: FDA-Public Use
  Company Number: A0686646A

PATIENT
  Age: 18 Year
  Sex: Female

DRUGS (4)
  1. AUGMENTIN '125' [Suspect]
     Indication: DRUG USE FOR UNKNOWN INDICATION
     Route: 048
     Dates: start: 20060501
  2. UNSPECIFIED MEDICATION [Concomitant]
  3. KEPPRA [Concomitant]
  4. KLONOPIN [Concomitant]

REACTIONS (10)
  - AGRANULOCYTOSIS [None]
  - CARDIAC FAILURE CONGESTIVE [None]
  - DIARRHOEA [None]
  - EAR PAIN [None]
  - LUNG INJURY [None]
  - PANCYTOPENIA [None]
  - RASH [None]
  - RENAL FAILURE [None]
  - SEPSIS [None]
  - SPLENOMEGALY [None]
